FAERS Safety Report 10550718 (Version 1)
Quarter: 2014Q4

REPORT INFORMATION
  Report Type: Spontaneous
  Country: US (occurrence: None)
  Receive Date: 20141028
  Receipt Date: 20141028
  Transmission Date: 20150529
  Serious: Yes (Disabling)
  Sender: FDA-Public Use
  Company Number: None

PATIENT
  Age: 62 Year
  Sex: Female
  Weight: 47.63 kg

DRUGS (6)
  1. VITAMIN D [Concomitant]
     Active Substance: CHOLECALCIFEROL
  2. MULTI VITAMIN [Concomitant]
     Active Substance: VITAMINS
  3. LISINOPRIL. [Concomitant]
     Active Substance: LISINOPRIL
  4. LOW DOSE ASPIRIN [Concomitant]
     Active Substance: ASPIRIN
  5. LATUDA [Suspect]
     Active Substance: LURASIDONE HYDROCHLORIDE
     Indication: DEPRESSION
     Dosage: STRENGTH: 20 MG TAKE 2 DAILY  AT ONCE TAKE 2- 20 MP PILLS EVENING WITH FOOD BY MOUTH WITH FOOD
     Route: 048
     Dates: start: 20140601, end: 20141014
  6. SIMVISTATIN [Concomitant]
     Active Substance: SIMVASTATIN

REACTIONS (1)
  - Blood glucose increased [None]

NARRATIVE: CASE EVENT DATE: 20140920
